FAERS Safety Report 7720910-7 (Version None)
Quarter: 2011Q3

REPORT INFORMATION
  Report Type: 
  Country: None (occurrence: None)
  Receive Date: 20110825
  Receipt Date: 20110809
  Transmission Date: 20111222
  Serious: Yes (Hospitalization)
  Sender: FDA-Public Use
  Company Number: 15964265

PATIENT
  Age: 87 Year
  Sex: Female

DRUGS (6)
  1. COUMADIN [Suspect]
     Dosage: 1 DOSAGE FORM TOTAL
     Dates: start: 20110722
  2. ALENDRONATE SODIUM [Suspect]
  3. RABEPRAZOLE SODIUM [Suspect]
  4. SIMVASTATIN [Suspect]
  5. LEVOTHYROXINE SODIUM [Suspect]
  6. LISINOPRIL [Suspect]

REACTIONS (2)
  - PROTHROMBIN TIME RATIO DECREASED [None]
  - SELF INJURIOUS BEHAVIOUR [None]
